FAERS Safety Report 18323198 (Version 1)
Quarter: 2020Q3

REPORT INFORMATION
  Report Type: Spontaneous
  Country: JP (occurrence: JP)
  Receive Date: 20200929
  Receipt Date: 20200929
  Transmission Date: 20201103
  Serious: Yes (Other)
  Sender: FDA-Public Use
  Company Number: JP-BRISTOL-MYERS SQUIBB COMPANY-BMS-2020-078973

PATIENT
  Age: 74 Year
  Sex: Female
  Weight: 43 kg

DRUGS (3)
  1. ELIQUIS [Suspect]
     Active Substance: APIXABAN
     Indication: CEREBROVASCULAR ACCIDENT PROPHYLAXIS
     Dosage: 5 MILLIGRAM, BID
     Route: 048
     Dates: start: 2013
  2. VITAMIN K [Concomitant]
     Active Substance: PHYTONADIONE
     Indication: PRODUCT USED FOR UNKNOWN INDICATION
     Dosage: UNK
     Route: 065
  3. CYTOTOXIC ANTIBIOTICS AND RELATED SUBSTANCES [Concomitant]
     Indication: PRODUCT USED FOR UNKNOWN INDICATION
     Dosage: UNK
     Route: 065

REACTIONS (7)
  - Red blood cell count increased [Unknown]
  - Capillary disorder [Unknown]
  - White blood cell count increased [Unknown]
  - Erythema [Unknown]
  - Ovarian cancer [Unknown]
  - Platelet count decreased [Unknown]
  - Pain in extremity [Unknown]
